FAERS Safety Report 17126935 (Version 1)
Quarter: 2019Q4

REPORT INFORMATION
  Report Type: Other
  Country: JP (occurrence: JP)
  Receive Date: 20191209
  Receipt Date: 20191209
  Transmission Date: 20200122
  Serious: Yes (Hospitalization, Other)
  Sender: FDA-Public Use
  Company Number: JP-ASTELLAS-2019JP021063

PATIENT
  Age: 79 Year
  Sex: Female

DRUGS (3)
  1. PROGRAF [Suspect]
     Active Substance: TACROLIMUS
     Indication: RHEUMATOID ARTHRITIS
     Route: 048
     Dates: start: 20190819, end: 20190830
  2. CARERAM [Suspect]
     Active Substance: IGURATIMOD
     Indication: RHEUMATOID ARTHRITIS
     Route: 048
     Dates: start: 20180807, end: 20190830
  3. AZULFIDINE EN-TABS [Concomitant]
     Active Substance: SULFASALAZINE
     Indication: PRODUCT USED FOR UNKNOWN INDICATION
     Dosage: UNK UNK, UNKNOWN FREQ.
     Route: 065

REACTIONS (6)
  - Bone marrow failure [Recovered/Resolved]
  - Swollen tongue [Recovered/Resolved]
  - Disseminated intravascular coagulation [Recovered/Resolved]
  - Pancytopenia [Recovered/Resolved]
  - Prescribed underdose [Unknown]
  - Stomatitis [Recovered/Resolved]

NARRATIVE: CASE EVENT DATE: 20190819
